FAERS Safety Report 5656787-3 (Version None)
Quarter: 2008Q1

REPORT INFORMATION
  Report Type: 
  Country: None (occurrence: None)
  Receive Date: 20080306
  Receipt Date: 20080306
  Transmission Date: 20080703
  Serious: Yes (Hospitalization)
  Sender: FDA-Public Use
  Company Number: None

PATIENT
  Age: 8 Year
  Sex: Female
  Weight: 27.2158 kg

DRUGS (1)
  1. TAMIFLU [Suspect]
     Indication: INFLUENZA IMMUNISATION
     Dosage: 1TEASPOON TWICE A DAY PO
     Route: 048
     Dates: start: 20080214, end: 20080220

REACTIONS (9)
  - ABNORMAL BEHAVIOUR [None]
  - AGGRESSION [None]
  - APHASIA [None]
  - FEAR [None]
  - MOOD ALTERED [None]
  - MORBID THOUGHTS [None]
  - ORAL INTAKE REDUCED [None]
  - SCREAMING [None]
  - SELF INJURIOUS BEHAVIOUR [None]
